FAERS Safety Report 9190121 (Version 3)
Quarter: 2013Q2

REPORT INFORMATION
  Report Type: Spontaneous
  Country: US (occurrence: US)
  Receive Date: 20130326
  Receipt Date: 20130626
  Transmission Date: 20140414
  Serious: Yes (Other)
  Sender: FDA-Public Use
  Company Number: US-NOVOPROD-373861

PATIENT
  Age: 5 Year
  Sex: Female
  Weight: 20.41 kg

DRUGS (8)
  1. NORDITROPIN FLEXPRO 3.3 MG/ML [Suspect]
     Indication: TURNER^S SYNDROME
     Dosage: 0.4 MG SQ 6 TIMES WEEKLY
     Route: 058
     Dates: start: 20100915
  2. NORDITROPIN FLEXPRO 3.3 MG/ML [Suspect]
     Indication: TRISOMY 8
     Dosage: 0.6 MG SQ 6 TIMES WEEKLY
     Route: 058
     Dates: start: 20110725
  3. NORDITROPIN FLEXPRO 3.3 MG/ML [Suspect]
     Dosage: 0.8 MG 6 TIMES WEEKLY
     Route: 058
     Dates: start: 20120227
  4. NORDITROPIN FLEXPRO 3.3 MG/ML [Suspect]
     Dosage: 0.85 MG 6 TIMES WEEKLY
     Route: 058
     Dates: start: 20120917
  5. NORDITROPIN FLEXPRO 3.3 MG/ML [Suspect]
     Dosage: 1 MG SQ 6 DAYS WEEKLY
     Dates: start: 20130213, end: 20130326
  6. CETIRIZINE [Concomitant]
     Indication: URTICARIA
     Dosage: 10 ML QD
     Route: 048
  7. HYDROXYZINE [Concomitant]
     Indication: URTICARIA
     Dosage: 5 ML PRN
     Route: 048
  8. DORZOLAMIDE HCL AND TIMOLOL MALEATE [Concomitant]
     Indication: OCULAR HYPERTENSION
     Dosage: 1 DROP IN BOTH EYES BID
     Route: 031
     Dates: start: 20130423

REACTIONS (4)
  - Uveitis [Recovering/Resolving]
  - Adenoidectomy [Unknown]
  - Myringotomy [Unknown]
  - Headache [Recovered/Resolved]
